FAERS Safety Report 10240903 (Version 1)
Quarter: 2014Q2

REPORT INFORMATION
  Report Type: Report from Study
  Country: US (occurrence: US)
  Receive Date: 20140617
  Receipt Date: 20140617
  Transmission Date: 20141212
  Serious: Yes (Hospitalization)
  Sender: FDA-Public Use
  Company Number: US-ROCHE-1416787

PATIENT
  Age: 70 Year
  Sex: Female
  Weight: 62.06 kg

DRUGS (2)
  1. BEVACIZUMAB [Suspect]
     Indication: RENAL CELL CARCINOMA
     Dosage: DATE OF LAST DOSE 12/MAR/2014
     Route: 042
     Dates: start: 20130513, end: 20140319
  2. TEMSIROLIMUS [Suspect]
     Indication: RENAL CELL CARCINOMA
     Dosage: DATE OF LAST DOSE 19/MAR/2014
     Route: 042
     Dates: start: 20130513, end: 20140326

REACTIONS (4)
  - Dyspnoea [Not Recovered/Not Resolved]
  - Oedema peripheral [Not Recovered/Not Resolved]
  - Localised oedema [Not Recovered/Not Resolved]
  - Rash [Not Recovered/Not Resolved]
